FAERS Safety Report 17560696 (Version 1)
Quarter: 2020Q1

REPORT INFORMATION
  Report Type: Spontaneous
  Country: SE (occurrence: SE)
  Receive Date: 20200319
  Receipt Date: 20200319
  Transmission Date: 20200409
  Serious: Yes (Other)
  Sender: FDA-Public Use
  Company Number: SE-009507513-2003SWE005569

PATIENT
  Age: 71 Year
  Sex: Female

DRUGS (1)
  1. TEMOZOLOMIDE. [Suspect]
     Active Substance: TEMOZOLOMIDE
     Indication: GLIOBLASTOMA MULTIFORME
     Dosage: 300 MILLIGRAM, QD; (175 MG/M^2) DAY 1-5.

REACTIONS (2)
  - Glioblastoma multiforme [Unknown]
  - Thrombocytopenia [Unknown]
